FAERS Safety Report 11339530 (Version 1)
Quarter: 2015Q3

REPORT INFORMATION
  Report Type: Spontaneous
  Country: US (occurrence: US)
  Receive Date: 20150805
  Receipt Date: 20150805
  Transmission Date: 20151125
  Serious: Yes (Hospitalization, Other)
  Sender: FDA-Public Use
  Company Number: US-ASTRAZENECA-2015SE73797

PATIENT
  Age: 84 Year
  Sex: Female

DRUGS (1)
  1. IRESSA [Suspect]
     Active Substance: GEFITINIB
     Route: 048

REACTIONS (2)
  - Lung neoplasm malignant [Unknown]
  - Pleural effusion [Unknown]
